FAERS Safety Report 8945485 (Version 1)
Quarter: 2012Q4

REPORT INFORMATION
  Report Type: 
  Country: IT (occurrence: IT)
  Receive Date: 20121205
  Receipt Date: 20121205
  Transmission Date: 20130627
  Serious: Yes (Other)
  Sender: FDA-Public Use
  Company Number: IT-BAYER-2012-124740

PATIENT
  Age: 61 Year
  Sex: Male
  Weight: 86 kg

DRUGS (2)
  1. AVALOX [Suspect]
     Indication: PRODUCTIVE COUGH
     Dosage: 400 mg, ONCE
     Route: 048
     Dates: start: 20121123
  2. TRIATEC [Concomitant]
     Indication: HYPERTENSION
     Dosage: Daily dose 5 mg
     Route: 048

REACTIONS (2)
  - Urticaria [Recovered/Resolved]
  - Respiratory distress [Recovered/Resolved]
